FAERS Safety Report 5062716-6 (Version None)
Quarter: 2006Q3

REPORT INFORMATION
  Report Type: 
  Country: None (occurrence: None)
  Receive Date: 20060725
  Receipt Date: 20060725
  Transmission Date: 20061208
  Serious: Yes (Life-Threatening)
  Sender: FDA-Public Use
  Company Number: None

PATIENT
  Age: 89 Year
  Sex: Female
  Weight: 42 kg

DRUGS (10)
  1. HURRICAINE SPRAY 20% [Suspect]
     Indication: ECHOCARDIOGRAM
     Dosage: ONE DOSE X1 TOP
     Route: 061
     Dates: start: 20060711, end: 20060711
  2. DEMEROL [Concomitant]
  3. VERSED [Concomitant]
  4. PLAVIX [Concomitant]
  5. POTASSIUM CHLORIDE [Concomitant]
  6. M.V.I. [Concomitant]
  7. LASIX [Concomitant]
  8. ASPIRIN [Concomitant]
  9. DIGOXIN [Concomitant]
  10. TOPROL-XL [Concomitant]

REACTIONS (4)
  - CYANOSIS [None]
  - METHAEMOGLOBINAEMIA [None]
  - OXYGEN SATURATION DECREASED [None]
  - VENTRICULAR EXTRASYSTOLES [None]
